FAERS Safety Report 19075651 (Version 2)
Quarter: 2022Q2

REPORT INFORMATION
  Report Type: Spontaneous
  Country: US (occurrence: US)
  Receive Date: 20210330
  Receipt Date: 20220404
  Transmission Date: 20220720
  Serious: Yes (Other)
  Sender: FDA-Public Use
  Company Number: US-ELI_LILLY_AND_COMPANY-US202103009803

PATIENT
  Age: 69 Year
  Sex: Female

DRUGS (22)
  1. TRULICITY [Suspect]
     Active Substance: DULAGLUTIDE
     Indication: Type 2 diabetes mellitus
     Dosage: 1.5 MG, UNKNOWN
     Route: 058
     Dates: start: 2020
  2. TRULICITY [Suspect]
     Active Substance: DULAGLUTIDE
     Indication: Type 2 diabetes mellitus
     Dosage: 1.5 MG, UNKNOWN
     Route: 058
     Dates: start: 2020
  3. TRULICITY [Suspect]
     Active Substance: DULAGLUTIDE
     Indication: Type 2 diabetes mellitus
     Dosage: 1.5 MG, UNKNOWN
     Route: 058
     Dates: start: 2020
  4. TRULICITY [Suspect]
     Active Substance: DULAGLUTIDE
     Indication: Type 2 diabetes mellitus
     Dosage: 1.5 MG, UNKNOWN
     Route: 058
     Dates: start: 2020
  5. TRULICITY [Suspect]
     Active Substance: DULAGLUTIDE
     Indication: Type 2 diabetes mellitus
     Dosage: 1.5 MG, UNKNOWN
     Route: 058
     Dates: start: 2020
  6. TRULICITY [Suspect]
     Active Substance: DULAGLUTIDE
     Dosage: 1.5 MG, UNKNOWN
     Route: 058
  7. TRULICITY [Suspect]
     Active Substance: DULAGLUTIDE
     Dosage: 1.5 MG, UNKNOWN
     Route: 058
  8. TRULICITY [Suspect]
     Active Substance: DULAGLUTIDE
     Dosage: 1.5 MG, UNKNOWN
     Route: 058
  9. TRULICITY [Suspect]
     Active Substance: DULAGLUTIDE
     Dosage: 1.5 MG, UNKNOWN
     Route: 058
  10. TRULICITY [Suspect]
     Active Substance: DULAGLUTIDE
     Dosage: 1.5 MG, UNKNOWN
     Route: 058
  11. TRULICITY [Suspect]
     Active Substance: DULAGLUTIDE
     Dosage: 1.5 MG, UNKNOWN
     Route: 058
  12. HUMALOG [Suspect]
     Active Substance: INSULIN LISPRO
     Indication: Product used for unknown indication
     Dosage: 25 U, UNKNOWN
     Route: 065
     Dates: start: 1997
  13. HUMALOG [Suspect]
     Active Substance: INSULIN LISPRO
     Indication: Product used for unknown indication
     Dosage: 25 U, UNKNOWN
     Route: 065
     Dates: start: 1997
  14. HUMALOG [Suspect]
     Active Substance: INSULIN LISPRO
     Indication: Product used for unknown indication
     Dosage: 25 U, UNKNOWN
     Route: 065
     Dates: start: 1997
  15. HUMALOG [Suspect]
     Active Substance: INSULIN LISPRO
     Dosage: 25 U, UNKNOWN
     Route: 065
  16. HUMALOG [Suspect]
     Active Substance: INSULIN LISPRO
     Dosage: 25 U, UNKNOWN
     Route: 065
  17. HUMALOG [Suspect]
     Active Substance: INSULIN LISPRO
     Dosage: 25 U, UNKNOWN
     Route: 065
  18. HUMALOG [Suspect]
     Active Substance: INSULIN LISPRO
     Dosage: 25 U, UNKNOWN
     Route: 065
  19. METFORMIN [Concomitant]
     Active Substance: METFORMIN HYDROCHLORIDE
     Indication: Product used for unknown indication
  20. INSULIN NOS [Concomitant]
     Active Substance: INSULIN NOS
     Indication: Product used for unknown indication
  21. REPATHA [Concomitant]
     Active Substance: EVOLOCUMAB
     Indication: Product used for unknown indication
  22. LANTUS [Concomitant]
     Active Substance: INSULIN GLARGINE
     Indication: Product used for unknown indication

REACTIONS (23)
  - Metastatic uterine cancer [Recovering/Resolving]
  - Skin cancer [Unknown]
  - Fall [Recovered/Resolved]
  - Back pain [Not Recovered/Not Resolved]
  - Visual impairment [Unknown]
  - Head injury [Unknown]
  - Spinal fracture [Recovered/Resolved]
  - Coccydynia [Recovered/Resolved]
  - Vitreous detachment [Unknown]
  - Ligament disorder [Unknown]
  - Asthenia [Unknown]
  - Disturbance in attention [Unknown]
  - Feeling abnormal [Unknown]
  - Glycosylated haemoglobin increased [Recovering/Resolving]
  - Depressed mood [Unknown]
  - Stress [Unknown]
  - Food allergy [Unknown]
  - Injection site bruising [Unknown]
  - Diarrhoea [Recovered/Resolved]
  - Therapeutic response decreased [Unknown]
  - Blood glucose abnormal [Unknown]
  - Drug ineffective [Recovering/Resolving]
  - Blood glucose increased [Recovering/Resolving]

NARRATIVE: CASE EVENT DATE: 20201001
